FAERS Safety Report 6414433-5 (Version None)
Quarter: 2009Q4

REPORT INFORMATION
  Report Type: 
  Country: None (occurrence: None)
  Receive Date: 20091026
  Receipt Date: 20091013
  Transmission Date: 20100525
  Serious: Yes (Hospitalization)
  Sender: FDA-Public Use
  Company Number: PHEH2009US13735

PATIENT
  Sex: Female

DRUGS (1)
  1. EXJADE [Suspect]
     Dosage: UNK
     Route: 048
     Dates: start: 20070711, end: 20090909

REACTIONS (2)
  - UTERINE CANCER [None]
  - UTERINE HAEMORRHAGE [None]
